FAERS Safety Report 21161784 (Version 1)
Quarter: 2022Q3

REPORT INFORMATION
  Report Type: Spontaneous
  Country: NL (occurrence: NL)
  Receive Date: 20220802
  Receipt Date: 20220802
  Transmission Date: 20221027
  Serious: Yes (Death, Other)
  Sender: FDA-Public Use
  Company Number: None

PATIENT
  Age: 29 Year
  Sex: Female

DRUGS (2)
  1. INDIUM IN-111 PENTETREOTIDE KIT [Suspect]
     Active Substance: INDIUM IN-111 PENTETREOTIDE
     Indication: Insulinoma
     Dosage: 9 CYCLES WITH TOTAL DOSAGE OF 92.8 GBQ.
  2. OCTREOTIDE [Suspect]
     Active Substance: OCTREOTIDE
     Dosage: UNK UKN, UNK
     Route: 058

REACTIONS (9)
  - Ascites [Unknown]
  - Anaemia [Unknown]
  - Leukopenia [Recovered/Resolved]
  - Hyperglycaemia [Unknown]
  - Thrombocytopenia [Unknown]
  - General physical health deterioration [Fatal]
  - Malignant neoplasm progression [Fatal]
  - Off label use [Recovered/Resolved]
  - Off label use [Recovered/Resolved]
